FAERS Safety Report 5306471-0 (Version None)
Quarter: 2007Q2

REPORT INFORMATION
  Report Type: 
  Country: None (occurrence: None)
  Receive Date: 20070416
  Receipt Date: 20070328
  Transmission Date: 20071010
  Serious: Yes (Disabling)
  Sender: FDA-Public Use
  Company Number: US019761

PATIENT
  Age: 35 Year
  Sex: Female

DRUGS (1)
  1. MODAFINIL [Suspect]
     Indication: MULTIPLE SCLEROSIS
     Dosage: 100 MG ORAL
     Route: 048
     Dates: start: 20060831, end: 20060902

REACTIONS (1)
  - COORDINATION ABNORMAL [None]
